FAERS Safety Report 4381686-7 (Version None)
Quarter: 2004Q2

REPORT INFORMATION
  Report Type: 
  Country: None (occurrence: None)
  Receive Date: 20040601
  Receipt Date: 20040331
  Transmission Date: 20050107
  Serious: Yes (Hospitalization)
  Sender: FDA-Public Use
  Company Number: FABR-10522

PATIENT
  Age: 37 Year
  Sex: Male
  Weight: 73.4827 kg

DRUGS (16)
  1. FABRAZYME [Suspect]
     Indication: FABRY'S DISEASE
     Dosage: 1 MG/KG Q2WKS IV
     Route: 042
     Dates: start: 20030530
  2. CELLCEPT [Concomitant]
  3. PROGRAF [Concomitant]
  4. PREDNISONE [Concomitant]
  5. MAGNESIUM OXIDE [Concomitant]
  6. NEURONTIN [Concomitant]
  7. OSCAL [Concomitant]
  8. SEREVENT [Concomitant]
  9. FOSAMAX [Concomitant]
  10. XANAX [Concomitant]
  11. EFFEXOR XR [Concomitant]
  12. DIATX [Concomitant]
  13. AMBIEN [Concomitant]
  14. PEPCID [Concomitant]
  15. SINGULAIR [Concomitant]
  16. ASPIRIN [Concomitant]

REACTIONS (1)
  - ABDOMINAL PAIN [None]
